FAERS Safety Report 10756976 (Version 1)
Quarter: 2015Q1

REPORT INFORMATION
  Report Type: Spontaneous
  Country: DE (occurrence: DE)
  Receive Date: 20150203
  Receipt Date: 20150203
  Transmission Date: 20150721
  Serious: Yes (Other)
  Sender: FDA-Public Use
  Company Number: GXKR2015DE000746

PATIENT
  Age: 64 Year
  Sex: Female

DRUGS (1)
  1. AIRFLUSAL FORSPIRO [Suspect]
     Active Substance: FLUTICASONE PROPIONATE\SALMETEROL XINAFOATE
     Indication: ASTHMA
     Dosage: UNK, ONCE/SINGLE
     Route: 055
     Dates: start: 20150127, end: 20150127

REACTIONS (4)
  - Dyspnoea [Not Recovered/Not Resolved]
  - Tongue coated [Not Recovered/Not Resolved]
  - Angioedema [Not Recovered/Not Resolved]
  - Palpitations [Not Recovered/Not Resolved]
